FAERS Safety Report 8556380-9 (Version None)
Quarter: 2012Q3

REPORT INFORMATION
  Report Type: 
  Country: None (occurrence: None)
  Receive Date: 20120801
  Receipt Date: 20120726
  Transmission Date: 20120928
  Serious: Yes (Hospitalization)
  Sender: FDA-Public Use
  Company Number: PHEH2012US014769

PATIENT
  Sex: Female
  Weight: 124.74 kg

DRUGS (1)
  1. DIOVAN HCT [Suspect]
     Dosage: 320 MG, QD

REACTIONS (1)
  - UTERINE CANCER [None]
